FAERS Safety Report 15101422 (Version 1)
Quarter: 2018Q3

REPORT INFORMATION
  Report Type: Spontaneous
  Country: US (occurrence: US)
  Receive Date: 20180703
  Receipt Date: 20180703
  Transmission Date: 20181010
  Serious: No
  Sender: FDA-Public Use
  Company Number: US-BAYER-2018-124298

PATIENT
  Age: 70 Year
  Sex: Female
  Weight: 58.96 kg

DRUGS (2)
  1. ZEGERID OTC CAPSULES [Suspect]
     Active Substance: OMEPRAZOLE\SODIUM BICARBONATE
     Indication: GASTROINTESTINAL DISORDER
     Dosage: 1 UNK, UNK
     Route: 048
     Dates: start: 20180627
  2. SYNTHROID [Concomitant]
     Active Substance: LEVOTHYROXINE SODIUM

REACTIONS (3)
  - Asthenia [Unknown]
  - Off label use [Unknown]
  - Product use in unapproved indication [Unknown]

NARRATIVE: CASE EVENT DATE: 20180627
